FAERS Safety Report 10556793 (Version 2)
Quarter: 2015Q1

REPORT INFORMATION
  Report Type: Spontaneous
  Country: FR (occurrence: FR)
  Receive Date: 20141031
  Receipt Date: 20150320
  Transmission Date: 20150720
  Serious: Yes (Disabling)
  Sender: FDA-Public Use
  Company Number: FR-AMGEN-FRASP2014083014

PATIENT
  Age: 45 Year
  Sex: Male

DRUGS (1)
  1. PROLIA [Suspect]
     Active Substance: DENOSUMAB
     Indication: OSTEOPOROTIC FRACTURE
     Dosage: 1 DF, Q6MO
     Route: 042
     Dates: start: 201406

REACTIONS (1)
  - Cataract subcapsular [Recovered/Resolved with Sequelae]

NARRATIVE: CASE EVENT DATE: 201408
